FAERS Safety Report 7512505-5 (Version None)
Quarter: 2011Q2

REPORT INFORMATION
  Report Type: 
  Country: None (occurrence: None)
  Receive Date: 20110520
  Receipt Date: 20110511
  Transmission Date: 20111010
  Serious: Yes (Hospitalization)
  Sender: FDA-Public Use
  Company Number: 2011002306

PATIENT
  Age: 65 Year
  Sex: Female

DRUGS (6)
  1. ERLOTINIB HYDROCHLORIDE [Suspect]
     Indication: NON-SMALL CELL LUNG CANCER
     Dosage: 150 MG, QD, ORAL
     Route: 048
     Dates: start: 20100830, end: 20110509
  2. HIRUDOID (HEPARINOID) [Concomitant]
  3. OFLOXACIN [Concomitant]
  4. FLUOROMETHOLONE (FLUOROMETHOLONE) [Concomitant]
  5. VITAMIN A [Concomitant]
  6. WHITE PETROLATUM [Concomitant]

REACTIONS (1)
  - PULMONARY INFARCTION [None]
